FAERS Safety Report 9227611 (Version 1)
Quarter: 2013Q1

REPORT INFORMATION
  Report Type: Spontaneous
  Country: US (occurrence: None)
  Receive Date: 20121012
  Receipt Date: 20121012
  Transmission Date: 20140127
  Serious: Yes (Hospitalization)
  Sender: FDA-Public Use
  Company Number: 1000030362

PATIENT
  Age: 90 Year
  Sex: Female

DRUGS (4)
  1. LEXAPRO [Suspect]
     Dates: start: 2012
  2. ASPIRIN (ACETYLSALICYLIC ACID) [Concomitant]
  3. WARFARIN (WARFARIN) [Concomitant]
  4. DIAZEPAM (DIAZEPAM) [Suspect]

REACTIONS (5)
  - Anaemia [None]
  - Fall [None]
  - Contusion [None]
  - Dizziness [None]
  - Fatigue [None]
